FAERS Safety Report 26047849 (Version 1)
Quarter: 2025Q4

REPORT INFORMATION
  Report Type: Spontaneous
  Country: US (occurrence: US)
  Receive Date: 20251114
  Receipt Date: 20251114
  Transmission Date: 20260117
  Serious: Yes (Life-Threatening, Hospitalization)
  Sender: GALPHARM INTERNATIONAL
  Company Number: US-MLMSERVICE-20251029-PI690961-00029-1

PATIENT
  Age: 17 Year

DRUGS (1)
  1. ACETAMINOPHEN [Suspect]
     Active Substance: ACETAMINOPHEN
     Indication: Intentional overdose
     Dosage: 9 G, SINGLE
     Route: 048

REACTIONS (6)
  - Intentional overdose [Recovering/Resolving]
  - Hyperbilirubinaemia [Recovering/Resolving]
  - Aspartate aminotransferase increased [Recovering/Resolving]
  - Alanine aminotransferase increased [Recovering/Resolving]
  - Hepatic steatosis [Recovering/Resolving]
  - International normalised ratio increased [Recovering/Resolving]
